FAERS Safety Report 4893443-3 (Version None)
Quarter: 2006Q1

REPORT INFORMATION
  Report Type: 
  Country: None (occurrence: None)
  Receive Date: 20060127
  Receipt Date: 20060117
  Transmission Date: 20060701
  Serious: Yes (Hospitalization, Other)
  Sender: FDA-Public Use
  Company Number: ES-BRISTOL-MYERS SQUIBB COMPANY-13248950

PATIENT
  Age: 6 Decade
  Sex: Female

DRUGS (1)
  1. LIPLAT [Suspect]
     Route: 048

REACTIONS (4)
  - CHEST PAIN [None]
  - COUGH [None]
  - MALAISE [None]
  - PNEUMONIA [None]
